FAERS Safety Report 5839326-3 (Version None)
Quarter: 2008Q3

REPORT INFORMATION
  Report Type: 
  Country: None (occurrence: None)
  Receive Date: 20080808
  Receipt Date: 20080730
  Transmission Date: 20090109
  Serious: Yes (Hospitalization)
  Sender: FDA-Public Use
  Company Number: BR-PFIZER INC-2008064228

PATIENT
  Sex: Male

DRUGS (1)
  1. CELEBRA [Suspect]
     Route: 048

REACTIONS (2)
  - HEPATIC ENZYME ABNORMAL [None]
  - LIVER DISORDER [None]
